FAERS Safety Report 7091483-X (Version None)
Quarter: 2010Q4

REPORT INFORMATION
  Report Type: 
  Country: None (occurrence: None)
  Receive Date: 20101105
  Receipt Date: 20101105
  Transmission Date: 20110411
  Serious: No
  Sender: FDA-Public Use
  Company Number: None

PATIENT
  Age: 51 Year
  Sex: Female
  Weight: 68.0396 kg

DRUGS (4)
  1. LATISSE [Suspect]
     Indication: GROWTH OF EYELASHES
     Dates: start: 20100601, end: 20100828
  2. SYNTHROID [Concomitant]
  3. PAXIL [Concomitant]
  4. PREVACID [Concomitant]

REACTIONS (2)
  - RETINAL HAEMORRHAGE [None]
  - VISUAL IMPAIRMENT [None]
